FAERS Safety Report 16793733 (Version 2)
Quarter: 2019Q4

REPORT INFORMATION
  Report Type: Spontaneous
  Country: JP (occurrence: JP)
  Receive Date: 20190911
  Receipt Date: 20191112
  Transmission Date: 20200122
  Serious: Yes (Hospitalization, Other)
  Sender: FDA-Public Use
  Company Number: JP-PFIZER INC-2019385053

PATIENT
  Age: 77 Year
  Sex: Male

DRUGS (18)
  1. NORMAL SALINE [Concomitant]
     Active Substance: SODIUM CHLORIDE
     Dosage: 1 DF, 2X/DAY
     Route: 041
     Dates: start: 20190905, end: 20190911
  2. SOLITA-T3 [Concomitant]
     Active Substance: POTASSIUM CHLORIDE\SODIUM CHLORIDE\SODIUM LACTATE
     Dosage: 500 ML, 1X/DAY
     Route: 041
     Dates: start: 20190831, end: 20190904
  3. FEBURIC [Concomitant]
     Active Substance: FEBUXOSTAT
     Dosage: 1 DF, 1X/DAY
     Route: 048
     Dates: start: 20190831
  4. SOLU-CORTEF [Suspect]
     Active Substance: HYDROCORTISONE SODIUM SUCCINATE
     Dosage: 100 MG, 2X/DAY
     Route: 041
     Dates: start: 20190831, end: 20190904
  5. SPIRONOLACTONE. [Concomitant]
     Active Substance: SPIRONOLACTONE
     Dosage: 1 DF, UNK
     Route: 048
     Dates: start: 20190831
  6. LOXOPROFEN SODIUM HYDRATE [Concomitant]
     Active Substance: LOXOPROFEN SODIUM DIHYDRATE
     Dosage: 2 DF, 2X/DAY
     Route: 048
     Dates: start: 20190831
  7. PREDNISOLONE. [Concomitant]
     Active Substance: PREDNISOLONE
     Dosage: 1 DF, 1X/DAY
     Route: 048
     Dates: start: 20190831
  8. TAZOPIPE [Concomitant]
     Active Substance: PIPERACILLIN SODIUM\TAZOBACTAM SODIUM
     Dosage: 1 DF, 2X/DAY
     Route: 041
     Dates: start: 20190831, end: 20190911
  9. LANSOPRAZOLE. [Concomitant]
     Active Substance: LANSOPRAZOLE
     Dosage: 1 DF, UNK
     Route: 048
     Dates: start: 20190831
  10. SOLITA-T3 [Concomitant]
     Active Substance: POTASSIUM CHLORIDE\SODIUM CHLORIDE\SODIUM LACTATE
     Dosage: 500 ML, 2X/DAY
     Route: 041
     Dates: start: 20190905, end: 20190911
  11. VERAPAMIL HYDROCHLORIDE. [Concomitant]
     Active Substance: VERAPAMIL HYDROCHLORIDE
     Dosage: 3 DF, 3X/DAY
     Route: 048
     Dates: start: 20190831
  12. NORMAL SALINE [Concomitant]
     Active Substance: SODIUM CHLORIDE
     Dosage: 100 ML, 2X/DAY
     Route: 041
     Dates: start: 20190831, end: 20190904
  13. NEOPHYLLIN [AMINOPHYLLINE] [Concomitant]
     Dosage: UNK UNK, 1X/DAY
     Route: 041
     Dates: start: 20190831, end: 20190904
  14. NEOPHYLLIN [AMINOPHYLLINE] [Concomitant]
     Dosage: UNK, 2X/DAY
     Route: 041
     Dates: start: 20190905, end: 20190911
  15. FUROSEMIDE. [Concomitant]
     Active Substance: FUROSEMIDE
     Dosage: 1 DF, 1X/DAY
     Route: 048
     Dates: start: 20190831
  16. LIMAPROST ALFADEX [Concomitant]
     Active Substance: LIMAPROST
     Dosage: 3 DF, 3X/DAY
     Route: 048
     Dates: start: 20190831
  17. SOLU-CORTEF [Suspect]
     Active Substance: HYDROCORTISONE SODIUM SUCCINATE
     Dosage: UNK UNK, 2X/DAY
     Route: 041
     Dates: start: 20190905, end: 20190911
  18. LIXIANA OD [Suspect]
     Active Substance: EDOXABAN TOSYLATE
     Dosage: 1 DF, UNK
     Route: 048
     Dates: start: 20190831, end: 20190906

REACTIONS (1)
  - Melaena [Recovered/Resolved]

NARRATIVE: CASE EVENT DATE: 20190904
